FAERS Safety Report 6208294-7 (Version None)
Quarter: 2009Q2

REPORT INFORMATION
  Report Type: 
  Country: None (occurrence: None)
  Receive Date: 20090529
  Receipt Date: 20090519
  Transmission Date: 20091009
  Serious: Yes (Death, Hospitalization)
  Sender: FDA-Public Use
  Company Number: GB-PFIZER INC-2005093452

PATIENT
  Age: 30 Year

DRUGS (14)
  1. *PLACEBO [Suspect]
     Indication: HIV TEST POSITIVE
     Dosage: UNK
     Route: 048
     Dates: start: 20050520, end: 20050817
  2. TENOFOVIR [Suspect]
     Indication: HIV TEST POSITIVE
     Dosage: EVERY 72 HOURS
     Route: 048
     Dates: start: 20050519, end: 20050818
  3. LAMIVUDINE [Concomitant]
     Route: 048
     Dates: start: 20041101
  4. STAVUDINE [Concomitant]
     Route: 048
     Dates: start: 20050519
  5. ATAZANAVIR SULFATE [Concomitant]
     Route: 048
     Dates: start: 20050310
  6. MIRTAZAPINE [Concomitant]
     Route: 048
     Dates: start: 20020101
  7. SANDO K [Concomitant]
     Route: 048
     Dates: start: 20050519
  8. VALGANCICLOVIR HCL [Concomitant]
     Route: 048
     Dates: start: 20040801
  9. SEPTRIN [Concomitant]
     Route: 048
     Dates: start: 19951016
  10. ONDANSETRON [Concomitant]
     Route: 048
     Dates: start: 20050531
  11. AZITHROMYCIN [Concomitant]
     Route: 048
     Dates: start: 19980101, end: 20050607
  12. EFAVIRENZ [Concomitant]
     Route: 048
     Dates: start: 20050519
  13. NULYTELY [Concomitant]
     Route: 048
     Dates: start: 20020101
  14. CALOGEN [Concomitant]
     Route: 048
     Dates: start: 20050607

REACTIONS (4)
  - ASCITES [None]
  - CONDITION AGGRAVATED [None]
  - HAEMOTHORAX [None]
  - RENAL FAILURE [None]
